FAERS Safety Report 10775883 (Version 1)
Quarter: 2015Q1

REPORT INFORMATION
  Report Type: Spontaneous
  Country: US (occurrence: US)
  Receive Date: 20150209
  Receipt Date: 20150209
  Transmission Date: 20150721
  Serious: No
  Sender: FDA-Public Use
  Company Number: US-TARO-2014TAR00328

PATIENT
  Sex: Male
  Weight: 108.84 kg

DRUGS (4)
  1. KETOCONAZOLE CREAM 2% [Suspect]
     Active Substance: KETOCONAZOLE
     Indication: SEBORRHOEIC DERMATITIS
     Dosage: 1 DOSAGE UNITS, AS NEEDED
     Route: 061
  2. UNSPECIFIED CHOLESTEROL MEDICATIONS [Concomitant]
  3. KETOCONAZOLE CREAM 2% [Suspect]
     Active Substance: KETOCONAZOLE
     Dosage: 1 DOSAGE UNITS, AS NEEDED
     Route: 061
     Dates: start: 2014
  4. UNSPECIFIED BLOOD PRESSURE MEDICATIONS [Concomitant]

REACTIONS (1)
  - Drug ineffective [Unknown]

NARRATIVE: CASE EVENT DATE: 2014
